FAERS Safety Report 16314308 (Version 1)
Quarter: 2019Q2

REPORT INFORMATION
  Report Type: Spontaneous
  Country: US (occurrence: US)
  Receive Date: 20190410
  Receipt Date: 20190410
  Transmission Date: 20190711
  Serious: No
  Sender: FDA-Public Use
  Company Number: None

PATIENT
  Age: 49 Year
  Sex: Female

DRUGS (1)
  1. ZARXIO [Suspect]
     Active Substance: FILGRASTIM-SNDZ
     Dosage: STRENGTH 480MCG/0.8ML PFS INJ
     Route: 058
     Dates: start: 201904

REACTIONS (3)
  - Exposure to allergen [None]
  - Syringe issue [None]
  - Product dispensing issue [None]

NARRATIVE: CASE EVENT DATE: 20190410
